FAERS Safety Report 18146943 (Version 3)
Quarter: 2021Q2

REPORT INFORMATION
  Report Type: Spontaneous
  Country: US (occurrence: US)
  Receive Date: 20200814
  Receipt Date: 20210409
  Transmission Date: 20210717
  Serious: No
  Sender: FDA-Public Use
  Company Number: US-AMGEN-USASP2020130597

PATIENT
  Sex: Female

DRUGS (7)
  1. XTAMPZA ER [Concomitant]
     Active Substance: OXYCODONE
     Dosage: 18 MILLIGRAM
  2. ENBREL [Suspect]
     Active Substance: ETANERCEPT
     Dosage: 50 MILLIGRAM, QWK
     Route: 058
  3. ENBREL [Suspect]
     Active Substance: ETANERCEPT
     Indication: RHEUMATOID ARTHRITIS
     Dosage: 50 MILLIGRAM, QWK
     Route: 058
     Dates: start: 202006
  4. OXYCODONE HYDROCHLORIDE. [Concomitant]
     Active Substance: OXYCODONE HYDROCHLORIDE
     Dosage: 10 MILLIGRAM
  5. IRBESARTAN HCT [Concomitant]
     Active Substance: HYDROCHLOROTHIAZIDE\IRBESARTAN
     Dosage: 150?12.5
  6. ASPIRIN [ACETYLSALICYLIC ACID] [Concomitant]
     Active Substance: ASPIRIN
     Dosage: 81 MILLIGRAM
  7. ROSUVASTATIN. [Concomitant]
     Active Substance: ROSUVASTATIN
     Dosage: 5 MILLIGRAM

REACTIONS (11)
  - Swelling [Not Recovered/Not Resolved]
  - Flatulence [Not Recovered/Not Resolved]
  - Decreased appetite [Recovered/Resolved]
  - Gait disturbance [Not Recovered/Not Resolved]
  - Blood pressure decreased [Not Recovered/Not Resolved]
  - Weight decreased [Recovered/Resolved]
  - Fatigue [Not Recovered/Not Resolved]
  - Injection site erythema [Recovered/Resolved]
  - Injection site pruritus [Recovered/Resolved]
  - Arthralgia [Not Recovered/Not Resolved]
  - Lymphadenopathy [Not Recovered/Not Resolved]
